FAERS Safety Report 7879857-8 (Version None)
Quarter: 2011Q4

REPORT INFORMATION
  Report Type: 
  Country: None (occurrence: None)
  Receive Date: 20111101
  Receipt Date: 20111021
  Transmission Date: 20120403
  Serious: Yes (Death, Life-Threatening, Hospitalization, Other)
  Sender: FDA-Public Use
  Company Number: JP-CELGENEUS-087-50794-11103243

PATIENT
  Sex: Male
  Weight: 58 kg

DRUGS (18)
  1. LANSOPRAZOLE [Concomitant]
     Dosage: 15 MILLIGRAM
     Route: 048
     Dates: start: 20091006, end: 20110722
  2. ZOSYN [Concomitant]
     Dosage: 18 GRAM
     Route: 041
     Dates: start: 20110714, end: 20110721
  3. ALLOPURINOL [Concomitant]
     Dosage: 200 MILLIGRAM
     Route: 048
     Dates: start: 20110411, end: 20110722
  4. FENTANYL-100 [Concomitant]
     Dosage: 6.3 MILLIGRAM
     Route: 065
     Dates: start: 20110430, end: 20110722
  5. VALTREX [Concomitant]
     Dosage: 3000 MILLIGRAM
     Route: 048
     Dates: start: 20110523, end: 20110529
  6. GLYCEOL [Concomitant]
     Dosage: 600 MILLILITER
     Route: 041
     Dates: start: 20110714, end: 20110722
  7. HYDREA [Concomitant]
     Dosage: 2000 MILLIGRAM
     Route: 048
     Dates: start: 20110418, end: 20110722
  8. LASIX [Concomitant]
     Dosage: 40 MILLIGRAM
     Route: 048
     Dates: start: 20110416, end: 20110722
  9. VIDAZA [Suspect]
     Dosage: 75 MILLIGRAM/SQ. METER
     Route: 041
     Dates: start: 20110607, end: 20110613
  10. AMPICILLIN SODIUM/SULBACTAM SODIUM [Concomitant]
     Dosage: 6 GRAM
     Route: 041
     Dates: start: 20110415, end: 20110610
  11. EXJADE [Concomitant]
     Dosage: 1000 MILLIGRAM
     Route: 048
     Dates: start: 20110430, end: 20110705
  12. LEVOFLOXACIN [Concomitant]
     Dosage: 500 MILLIGRAM
     Route: 048
     Dates: start: 20110611, end: 20110627
  13. VANCOMYCIN HCL [Concomitant]
     Dosage: 2 GRAM
     Route: 041
     Dates: start: 20110714, end: 20110721
  14. VIDAZA [Suspect]
     Dosage: 75 MILLIGRAM/SQ. METER
     Route: 041
     Dates: start: 20110706, end: 20110714
  15. ASPARA POTASSIUM [Concomitant]
     Dosage: 1800 MILLIGRAM
     Route: 048
     Dates: start: 20110429, end: 20110722
  16. PREDNISOLONE [Concomitant]
     Dosage: 10 MILLIGRAM
     Route: 048
     Dates: start: 20091006, end: 20110722
  17. SULFAMETHOXAZOLE [Concomitant]
     Dosage: 2 DF
     Route: 048
     Dates: start: 20091201, end: 20110722
  18. VIDAZA [Suspect]
     Dosage: 75 MILLIGRAM/SQ. METER
     Route: 041
     Dates: start: 20110510, end: 20110516

REACTIONS (9)
  - HERPES SIMPLEX [None]
  - BLOOD LACTATE DEHYDROGENASE INCREASED [None]
  - CEREBRAL HAEMORRHAGE [None]
  - SEPSIS [None]
  - SKIN HAEMORRHAGE [None]
  - MUCOSAL HAEMORRHAGE [None]
  - ASPARTATE AMINOTRANSFERASE INCREASED [None]
  - FIBRIN DECREASED [None]
  - BLOOD URIC ACID INCREASED [None]
